FAERS Safety Report 26134074 (Version 1)
Quarter: 2025Q4

REPORT INFORMATION
  Report Type: Spontaneous
  Country: EU (occurrence: EU)
  Receive Date: 20251209
  Receipt Date: 20251209
  Transmission Date: 20260117
  Serious: Yes (Other)
  Sender: RANBAXY
  Company Number: EU-AFSSAPS-NT2025000853

PATIENT
  Age: 90 Year
  Sex: Male
  Weight: 66.5 kg

DRUGS (2)
  1. DONEPEZIL [Suspect]
     Active Substance: DONEPEZIL
     Indication: Dementia with Lewy bodies
     Dosage: 10MG PER DAY (PREVIOUSLY TAKE A DOSE OF DONEPEZIL 5MG PER DAY BEFORE ONE MONTH)
     Route: 048
     Dates: start: 20250710, end: 20250731
  2. GALANTAMINE HYDROBROMIDE [Suspect]
     Active Substance: GALANTAMINE HYDROBROMIDE
     Indication: Dementia with Lewy bodies
     Dosage: UNK
     Route: 065

REACTIONS (1)
  - Hypersexuality [Recovering/Resolving]

NARRATIVE: CASE EVENT DATE: 20250720
